FAERS Safety Report 16347987 (Version 1)
Quarter: 2019Q2

REPORT INFORMATION
  Report Type: Spontaneous
  Country: US (occurrence: US)
  Receive Date: 20190523
  Receipt Date: 20190523
  Transmission Date: 20190711
  Serious: No
  Sender: FDA-Public Use
  Company Number: US-TARO-2018TAR00377

PATIENT
  Age: 66 Year
  Sex: Female
  Weight: 81.63 kg

DRUGS (8)
  1. TERCONAZOLE VAGINAL CREAM 0.8% [Suspect]
     Active Substance: TERCONAZOLE
     Indication: PRURITUS
     Dosage: UNK UNK, 1X/DAY ^AS INSTRUCTED^
     Route: 067
     Dates: start: 201804, end: 2018
  2. TERCONAZOLE VAGINAL CREAM 0.8% [Suspect]
     Active Substance: TERCONAZOLE
     Dosage: UNK UNK, 1X/DAY ^AS INSTRUCTED^
     Route: 067
     Dates: start: 2018, end: 2018
  3. CYMBALTA [Concomitant]
     Active Substance: DULOXETINE HYDROCHLORIDE
     Dosage: ON FOR 12 OR 13 YEARS
  4. CENTRUM OVER 50^S MULTIVITAMIN [Concomitant]
     Dosage: FOR AROUND 16 YEARS
  5. UNSPECIFIED ANTIBIOTICS [Suspect]
     Active Substance: UNSPECIFIED INGREDIENT
     Indication: URINARY TRACT INFECTION
     Dosage: UNK
     Dates: start: 2018, end: 2018
  6. UNSPECIFIED ANTIBIOTICS [Suspect]
     Active Substance: UNSPECIFIED INGREDIENT
     Dosage: UNK
     Dates: start: 201805, end: 201805
  7. ASPIRIN. [Concomitant]
     Active Substance: ASPIRIN
     Dosage: FOR AROUND 10 YEARS
  8. XANAX [Concomitant]
     Active Substance: ALPRAZOLAM
     Dosage: SINCE THE 90^S

REACTIONS (4)
  - Underdose [Recovered/Resolved]
  - Pruritus [Not Recovered/Not Resolved]
  - Product packaging issue [Recovered/Resolved]
  - Urinary tract infection [Unknown]

NARRATIVE: CASE EVENT DATE: 201804
